FAERS Safety Report 16176632 (Version 1)
Quarter: 2019Q2

REPORT INFORMATION
  Report Type: Spontaneous
  Country: CA (occurrence: CA)
  Receive Date: 20190409
  Receipt Date: 20190409
  Transmission Date: 20190711
  Serious: Yes (Other)
  Sender: FDA-Public Use
  Company Number: CA-PFIZER INC-2019126620

PATIENT
  Age: 77 Year
  Sex: Female

DRUGS (4)
  1. HYDROXYCHLOROQUINE [Concomitant]
     Active Substance: HYDROXYCHLOROQUINE
     Dosage: 200 MG, UNK (FROM MORE THAN 3 MONTHS)
  2. SHINGRIX [Concomitant]
     Active Substance: RECOMBINANT VARICELLA ZOSTER VIRUS (VZV) GLYCOPROTEIN E
     Dosage: UNK
     Dates: start: 20190319, end: 20190319
  3. PLAQUENIL S [Concomitant]
     Active Substance: HYDROXYCHLOROQUINE SULFATE
     Dosage: UNK
  4. METHOTREXATE SODIUM. [Suspect]
     Active Substance: METHOTREXATE SODIUM
     Dosage: 20 MG, UNK
     Dates: start: 2015, end: 2017

REACTIONS (6)
  - Fibrosis [Unknown]
  - Arthralgia [Unknown]
  - Pyrexia [Recovering/Resolving]
  - Drug intolerance [Unknown]
  - Joint swelling [Unknown]
  - Emphysema [Unknown]

NARRATIVE: CASE EVENT DATE: 20190319
